FAERS Safety Report 6465676-6 (Version None)
Quarter: 2009Q4

REPORT INFORMATION
  Report Type: 
  Country: None (occurrence: None)
  Receive Date: 20091118
  Receipt Date: 20090706
  Transmission Date: 20100525
  Serious: Yes (Other)
  Sender: FDA-Public Use
  Company Number: 2009BI018482

PATIENT
  Sex: Female

DRUGS (4)
  1. TYSABRI [Suspect]
     Indication: CROHN'S DISEASE
     Dosage: 300 MG; QM; IV
     Route: 042
     Dates: start: 20081106
  2. TPN [Concomitant]
  3. PREVACID [Concomitant]
  4. LORAZEPAM [Concomitant]

REACTIONS (2)
  - MALNUTRITION [None]
  - PYREXIA [None]
